FAERS Safety Report 11722316 (Version 5)
Quarter: 2017Q2

REPORT INFORMATION
  Report Type: Spontaneous
  Country: US (occurrence: US)
  Receive Date: 20151111
  Receipt Date: 20170414
  Transmission Date: 20170829
  Serious: Yes (Hospitalization, Disabling, Other)
  Sender: FDA-Public Use
  Company Number: US-009507513-1511USA005104

PATIENT
  Sex: Female

DRUGS (4)
  1. FOSAMAX [Suspect]
     Active Substance: ALENDRONATE SODIUM
     Dosage: 70 MG, QW
     Route: 048
     Dates: start: 20020605, end: 20080308
  2. FOLIC ACID. [Concomitant]
     Active Substance: FOLIC ACID
     Indication: PRODUCT USED FOR UNKNOWN INDICATION
     Dosage: 1 MG, UNKNOWN
     Route: 065
     Dates: start: 2002
  3. FOSAMAX [Suspect]
     Active Substance: ALENDRONATE SODIUM
     Indication: OSTEOPOROSIS
     Dosage: 10 MG, QD
     Route: 048
     Dates: start: 20020118, end: 20020605
  4. CALCIUM (UNSPECIFIED) [Concomitant]
     Active Substance: CALCIUM
     Indication: PRODUCT USED FOR UNKNOWN INDICATION
     Dosage: 500 MG, UNKNOWN
     Route: 065
     Dates: start: 2002

REACTIONS (29)
  - Hip fracture [Recovered/Resolved]
  - Femur fracture [Unknown]
  - Gastrooesophageal reflux disease [Unknown]
  - Hypoacusis [Unknown]
  - Peripheral vascular disorder [Unknown]
  - Aortic dilatation [Unknown]
  - Femur fracture [Recovered/Resolved]
  - Fall [Unknown]
  - Back pain [Unknown]
  - Psoriasis [Unknown]
  - Incorrect dose administered [Unknown]
  - Deformity thorax [Unknown]
  - Basal cell carcinoma [Unknown]
  - Fibula fracture [Unknown]
  - Asthenia [Unknown]
  - Discomfort [Unknown]
  - Knee arthroplasty [Unknown]
  - Peripheral artery occlusion [Unknown]
  - Fall [Unknown]
  - Pulmonary mass [Unknown]
  - Peripheral swelling [Unknown]
  - Osteoporosis [Not Recovered/Not Resolved]
  - Coronary artery disease [Unknown]
  - Osteoarthritis [Not Recovered/Not Resolved]
  - Femur fracture [Not Recovered/Not Resolved]
  - Scoliosis [Unknown]
  - Irritable bowel syndrome [Unknown]
  - Aortic bruit [Unknown]
  - Blood cholesterol increased [Not Recovered/Not Resolved]

NARRATIVE: CASE EVENT DATE: 2002
